FAERS Safety Report 8969411 (Version 4)
Quarter: 2013Q1

REPORT INFORMATION
  Report Type: Spontaneous
  Country: US (occurrence: US)
  Receive Date: 20121218
  Receipt Date: 20130313
  Transmission Date: 20140127
  Serious: Yes (Hospitalization)
  Sender: FDA-Public Use
  Company Number: US-PFIZER INC-2012305460

PATIENT
  Age: 61 Year
  Sex: Female

DRUGS (8)
  1. CAMPTOSAR [Suspect]
     Indication: COLORECTAL CANCER
     Dosage: 120 MG, CYCLIC
     Route: 042
     Dates: start: 20120816, end: 20121025
  2. CAMPTOSAR [Suspect]
     Dosage: 120 MG, 1X/DAY
     Route: 042
     Dates: start: 20121025, end: 20121025
  3. FLUOROURACIL [Suspect]
     Indication: COLORECTAL CANCER
     Dosage: EVERY CYCLE
     Route: 042
  4. ZALTRAP [Suspect]
     Indication: COLORECTAL CANCER
     Dosage: 292 MG, EVERY CYCLE
     Route: 042
     Dates: start: 20120908, end: 20121026
  5. ZALTRAP [Suspect]
     Dosage: 4 MG/KG, 1X/DAY
     Route: 042
     Dates: start: 20121026, end: 20121026
  6. ZOFRAN [Concomitant]
     Indication: COLORECTAL CANCER
     Dosage: UNK
     Dates: start: 20120816, end: 20121026
  7. COLACE [Concomitant]
     Indication: CONSTIPATION
     Dosage: UNK
  8. PRILOSEC [Concomitant]
     Indication: GASTROOESOPHAGEAL REFLUX DISEASE
     Dosage: UNK

REACTIONS (1)
  - Blood pressure increased [Recovered/Resolved]
